FAERS Safety Report 13874003 (Version 1)
Quarter: 2017Q3

REPORT INFORMATION
  Report Type: Spontaneous
  Country: US (occurrence: US)
  Receive Date: 20170816
  Receipt Date: 20170816
  Transmission Date: 20171127
  Serious: Yes (Other)
  Sender: FDA-Public Use
  Company Number: US-PRODUCTLIFE GROUP-GTC2012000010

PATIENT
  Age: 2 Day
  Sex: Male
  Weight: 4.5 kg

DRUGS (11)
  1. LASIX [Concomitant]
     Active Substance: FUROSEMIDE
     Indication: PRODUCT USED FOR UNKNOWN INDICATION
     Dosage: 4 MG, Q12H
     Route: 042
  2. MILRINONE [Concomitant]
     Active Substance: MILRINONE
     Indication: PRODUCT USED FOR UNKNOWN INDICATION
     Dosage: UNK
     Route: 042
  3. GENTAMICIN. [Concomitant]
     Active Substance: GENTAMICIN
     Indication: PRODUCT USED FOR UNKNOWN INDICATION
     Dosage: 19 MG, Q12 HOURS
     Route: 042
  4. ATRYN [Suspect]
     Active Substance: ANTITHROMBIN ALFA
     Indication: EXTRACORPOREAL MEMBRANE OXYGENATION
     Dosage: MAINTENANCE INFUSION AT 34 UNITS/HR
     Route: 042
     Dates: start: 20120531, end: 20120602
  5. HEPARIN [Concomitant]
     Active Substance: HEPARIN SODIUM
     Indication: PRODUCT USED FOR UNKNOWN INDICATION
     Dosage: UNK
     Route: 042
  6. PROTONIX [Concomitant]
     Active Substance: PANTOPRAZOLE SODIUM
     Indication: PRODUCT USED FOR UNKNOWN INDICATION
     Dosage: 5 MG, QD
     Route: 042
  7. DOPAMINE [Concomitant]
     Active Substance: DOPAMINE\DOPAMINE HYDROCHLORIDE
     Indication: PRODUCT USED FOR UNKNOWN INDICATION
     Dosage: UNK
     Route: 042
  8. AMPICILLIN [Concomitant]
     Active Substance: AMPICILLIN
     Indication: PRODUCT USED FOR UNKNOWN INDICATION
     Dosage: 460 MG Q12H
     Route: 042
  9. GLUCAGON. [Suspect]
     Active Substance: GLUCAGON
     Indication: BLOOD GLUCOSE DECREASED
     Dosage: 10 MCG/KG/HR
     Route: 042
     Dates: start: 20120531, end: 20120602
  10. ATRYN [Suspect]
     Active Substance: ANTITHROMBIN ALFA
     Indication: PULMONARY HYPERTENSION
     Dosage: 150 UT, LOADING DOSE
     Route: 042
     Dates: start: 20120531
  11. FENTANYL. [Concomitant]
     Active Substance: FENTANYL
     Indication: PRODUCT USED FOR UNKNOWN INDICATION
     Dosage: UNK
     Route: 042

REACTIONS (5)
  - Off label use [Unknown]
  - Drug ineffective for unapproved indication [Unknown]
  - No adverse event [Unknown]
  - Drug administered to patient of inappropriate age [Unknown]
  - Expired product administered [Recovered/Resolved]

NARRATIVE: CASE EVENT DATE: 20120531
